FAERS Safety Report 6308091-8 (Version None)
Quarter: 2009Q3

REPORT INFORMATION
  Report Type: 
  Country: None (occurrence: None)
  Receive Date: 20090813
  Receipt Date: 20090803
  Transmission Date: 20100115
  Serious: Yes (Other)
  Sender: FDA-Public Use
  Company Number: US-ABBOTT-09P-163-0589064-00

PATIENT
  Sex: Female
  Weight: 77.18 kg

DRUGS (8)
  1. HUMIRA [Suspect]
     Indication: RHEUMATOID ARTHRITIS
     Dates: start: 20080512
  2. HUMIRA [Suspect]
  3. METHADONE [Concomitant]
     Indication: PAIN
  4. OXYCODONE [Concomitant]
     Indication: BREAKTHROUGH PAIN
  5. BACLOFEN [Concomitant]
     Indication: RHEUMATOID ARTHRITIS
  6. IMITREX [Concomitant]
     Indication: MIGRAINE
  7. NAPROXEN [Concomitant]
     Indication: MIGRAINE
  8. LASIX [Concomitant]
     Indication: OEDEMA

REACTIONS (8)
  - CARPAL TUNNEL SYNDROME [None]
  - CYST [None]
  - MENISCUS LESION [None]
  - NASAL DISORDER [None]
  - OEDEMA PERIPHERAL [None]
  - SYNOVIAL CYST [None]
  - URINARY TRACT INFECTION [None]
  - VOCAL CORD POLYP [None]
